FAERS Safety Report 8500639-8 (Version None)
Quarter: 2012Q3

REPORT INFORMATION
  Report Type: 
  Country: None (occurrence: None)
  Receive Date: 20120710
  Receipt Date: 20120627
  Transmission Date: 20120928
  Serious: No
  Sender: FDA-Public Use
  Company Number: US-ASTRAZENECA-2012SE43766

PATIENT
  Age: 50 Year
  Sex: Male
  Weight: 63.5 kg

DRUGS (3)
  1. SEROQUEL XR [Suspect]
     Indication: MAJOR DEPRESSION
     Dosage: QAM
     Route: 048
  2. SEROQUEL XR [Suspect]
     Indication: SCHIZOPHRENIA
     Dosage: QAM
     Route: 048
  3. KLONOPIN [Concomitant]

REACTIONS (5)
  - OFF LABEL USE [None]
  - DRUG WITHDRAWAL SYNDROME [None]
  - ANXIETY [None]
  - AGITATION [None]
  - PARANOIA [None]
